FAERS Safety Report 9271463 (Version 1)
Quarter: 2013Q2

REPORT INFORMATION
  Report Type: Report from Study
  Country: CH (occurrence: CH)
  Receive Date: 20130506
  Receipt Date: 20130506
  Transmission Date: 20140414
  Serious: Yes (Hospitalization)
  Sender: FDA-Public Use
  Company Number: CH-BAYER-2013-053120

PATIENT
  Sex: Male

DRUGS (2)
  1. SORAFENIB (RAF KINASE INHIBITOR) [Suspect]
     Indication: RECTAL CANCER
     Dosage: 400MG
     Route: 048
     Dates: start: 20130311, end: 20130414
  2. CAPECITABINE [Suspect]
     Indication: RECTAL CANCER
     Dosage: 3300MG
     Route: 048
     Dates: start: 20130311, end: 20130417

REACTIONS (1)
  - Enteritis [None]
